FAERS Safety Report 26173262 (Version 1)
Quarter: 2025Q4

REPORT INFORMATION
  Report Type: Spontaneous
  Country: US (occurrence: US)
  Receive Date: 20251218
  Receipt Date: 20251218
  Transmission Date: 20260117
  Serious: No
  Sender: ROCHE
  Company Number: US-ROCHE-10000459932

PATIENT
  Age: 36 Year
  Sex: Female

DRUGS (2)
  1. XOLAIR [Suspect]
     Active Substance: OMALIZUMAB
     Indication: Urticaria
     Dosage: STRENGTH: 300 MG/2 ML
     Route: 058
     Dates: start: 202410
  2. XOLAIR [Suspect]
     Active Substance: OMALIZUMAB
     Dosage: STRENGTH: 300 MG/2 ML
     Route: 058

REACTIONS (2)
  - Urticaria [Unknown]
  - Off label use [Unknown]

NARRATIVE: CASE EVENT DATE: 20251101
